FAERS Safety Report 23455414 (Version 1)
Quarter: 2024Q1

REPORT INFORMATION
  Report Type: Spontaneous
  Country: US (occurrence: US)
  Receive Date: 20240130
  Receipt Date: 20240130
  Transmission Date: 20240410
  Serious: Yes (Other)
  Sender: FDA-Public Use
  Company Number: US-STRIDES ARCOLAB LIMITED-2023SP017010

PATIENT
  Age: 21 Year
  Sex: Female

DRUGS (4)
  1. METHOTREXATE [Suspect]
     Active Substance: METHOTREXATE
     Indication: Metastatic cutaneous Crohn^s disease
     Dosage: 15 MILLIGRAM WEEKLY
     Route: 065
  2. ADALIMUMAB [Concomitant]
     Active Substance: ADALIMUMAB\ISOPROPYL ALCOHOL
     Indication: Metastatic cutaneous Crohn^s disease
     Dosage: UNK
     Route: 065
  3. DOXYCYCLINE [Concomitant]
     Active Substance: DOXYCYCLINE
     Indication: Metastatic cutaneous Crohn^s disease
     Dosage: UNK
     Route: 065
  4. PREDNISONE [Concomitant]
     Active Substance: PREDNISONE
     Indication: Metastatic cutaneous Crohn^s disease
     Dosage: UNK
     Route: 065

REACTIONS (4)
  - Transaminases increased [Unknown]
  - Fatigue [Unknown]
  - Therapy partial responder [Unknown]
  - Off label use [Unknown]
